FAERS Safety Report 8372843-3 (Version None)
Quarter: 2012Q2

REPORT INFORMATION
  Report Type: 
  Country: None (occurrence: None)
  Receive Date: 20120521
  Receipt Date: 20120518
  Transmission Date: 20120825
  Serious: Yes (Other)
  Sender: FDA-Public Use
  Company Number: US-PFIZER INC-2012121463

PATIENT
  Sex: Female
  Weight: 63.492 kg

DRUGS (2)
  1. CHANTIX [Suspect]
     Indication: SMOKING CESSATION THERAPY
     Dosage: 0.5 MG, 1X/DAY
     Route: 048
     Dates: start: 20120201, end: 20120101
  2. CHANTIX [Suspect]
     Dosage: 1 MG, 2X/DAY
     Route: 048
     Dates: start: 20120101, end: 20120501

REACTIONS (14)
  - MOOD ALTERED [None]
  - MALAISE [None]
  - NERVOUS SYSTEM DISORDER [None]
  - DYSGEUSIA [None]
  - FEELING ABNORMAL [None]
  - STARVATION [None]
  - AGEUSIA [None]
  - EATING DISORDER [None]
  - FLATULENCE [None]
  - GENERAL PHYSICAL HEALTH DETERIORATION [None]
  - ABDOMINAL DISTENSION [None]
  - ABNORMAL FAECES [None]
  - GASTROINTESTINAL PAIN [None]
  - EMOTIONAL DISORDER [None]
